FAERS Safety Report 11513515 (Version 1)
Quarter: 2015Q3

REPORT INFORMATION
  Report Type: Spontaneous
  Country: US (occurrence: US)
  Receive Date: 20150916
  Receipt Date: 20150916
  Transmission Date: 20151125
  Serious: Yes (Hospitalization)
  Sender: FDA-Public Use
  Company Number: US-ASTELLAS-2015US028495

PATIENT
  Age: 43 Year
  Sex: Female

DRUGS (1)
  1. PROGRAF [Suspect]
     Active Substance: TACROLIMUS\TACROLIMUS ANHYDROUS
     Indication: PANCREAS TRANSPLANT
     Dosage: 2 CAPSULES AM, 3 CAPSULES PM
     Route: 048
     Dates: start: 20080101

REACTIONS (3)
  - Off label use [Unknown]
  - Calciphylaxis [Unknown]
  - Wound [Unknown]

NARRATIVE: CASE EVENT DATE: 201506
